FAERS Safety Report 9140661 (Version 1)
Quarter: 2013Q1

REPORT INFORMATION
  Report Type: Spontaneous
  Country: US (occurrence: US)
  Receive Date: 20130305
  Receipt Date: 20130305
  Transmission Date: 20140127
  Serious: Yes (Death)
  Sender: FDA-Public Use
  Company Number: US-GLAXOSMITHKLINE-A1014648A

PATIENT
  Age: 54 Year
  Sex: Male

DRUGS (2)
  1. VOTRIENT [Suspect]
     Indication: MALIGNANT LYMPHOID NEOPLASM
     Dosage: 200MG SEE DOSAGE TEXT
     Route: 048
     Dates: start: 20121130, end: 20130225
  2. NO CONCURRENT MEDICATION [Concomitant]

REACTIONS (1)
  - Death [Fatal]
